FAERS Safety Report 6077979-8 (Version None)
Quarter: 2009Q1

REPORT INFORMATION
  Report Type: 
  Country: None (occurrence: None)
  Receive Date: 20090121
  Receipt Date: 20081209
  Transmission Date: 20090719
  Serious: Yes (Other)
  Sender: FDA-Public Use
  Company Number: US-WYE-H07181608

PATIENT
  Age: 69 Year
  Sex: Female
  Weight: 63.56 kg

DRUGS (2)
  1. ADVIL PM [Suspect]
     Indication: INSOMNIA
     Dosage: CAPLETS X 1, ORAL
     Route: 048
     Dates: start: 20081201, end: 20081201
  2. ADVIL PM [Suspect]
     Indication: PAIN
     Dosage: CAPLETS X 1, ORAL
     Route: 048
     Dates: start: 20081201, end: 20081201

REACTIONS (2)
  - COELIAC DISEASE [None]
  - CONDITION AGGRAVATED [None]
